FAERS Safety Report 7904195-4 (Version None)
Quarter: 2011Q4

REPORT INFORMATION
  Report Type: 
  Country: None (occurrence: None)
  Receive Date: 20111109
  Receipt Date: 20111028
  Transmission Date: 20120403
  Serious: Yes (Other)
  Sender: FDA-Public Use
  Company Number: US-BAYER-2011-041027

PATIENT
  Age: 27 Year
  Sex: Female
  Weight: 67.12 kg

DRUGS (5)
  1. YAZ [Suspect]
     Indication: CONTRACEPTION
     Dosage: UNK
     Dates: start: 20070401, end: 20090801
  2. YAZ [Suspect]
     Indication: PREMENSTRUAL SYNDROME
  3. AMOXICILLIN [Concomitant]
     Dosage: UNK
     Dates: start: 20060101, end: 20090101
  4. HYDROCODONE BITARTRATE [Concomitant]
     Dosage: UNK
     Dates: start: 20080101, end: 20090101
  5. CIPRO [Concomitant]
     Dosage: UNK
     Dates: start: 20080101, end: 20090101

REACTIONS (6)
  - ANXIETY [None]
  - INJURY [None]
  - CHOLECYSTITIS CHRONIC [None]
  - PAIN [None]
  - GALLBLADDER INJURY [None]
  - EMOTIONAL DISTRESS [None]
